FAERS Safety Report 7398097-2 (Version None)
Quarter: 2011Q2

REPORT INFORMATION
  Report Type: 
  Country: None (occurrence: None)
  Receive Date: 20110406
  Receipt Date: 20110328
  Transmission Date: 20111010
  Serious: Yes (Hospitalization)
  Sender: FDA-Public Use
  Company Number: FR-TEVA-274287ISR

PATIENT
  Sex: Female

DRUGS (3)
  1. DIAZEPAM [Suspect]
     Indication: ANXIETY
     Dates: start: 20081001
  2. PAROXETINE HYDROCHLORIDE [Concomitant]
     Indication: MENTAL DISORDER
     Route: 048
  3. VALPROMIDE [Concomitant]
     Indication: EPILEPSY
     Route: 048

REACTIONS (4)
  - ACCIDENTAL OVERDOSE [None]
  - SKIN DISCOLOURATION [None]
  - BLOOD PRESSURE ABNORMAL [None]
  - TACHYCARDIA [None]
